FAERS Safety Report 5027590-2 (Version None)
Quarter: 2006Q2

REPORT INFORMATION
  Report Type: 
  Country: None (occurrence: None)
  Receive Date: 20060616
  Receipt Date: 20060530
  Transmission Date: 20061013
  Serious: Yes (Other)
  Sender: FDA-Public Use
  Company Number: PHBS2006JP08133

PATIENT
  Age: 60 Year
  Sex: Male

DRUGS (6)
  1. DIOVAN [Suspect]
     Indication: HYPERTENSION
     Dosage: 80 MG/DAY
     Route: 048
     Dates: start: 20051221, end: 20060330
  2. DIOVAN [Suspect]
     Dosage: 180 MG/DAY
     Route: 048
     Dates: start: 20060331, end: 20060526
  3. ACTOS [Concomitant]
     Dosage: 30 MG, UNK
     Route: 048
     Dates: end: 20060428
  4. NORVASC [Concomitant]
     Dosage: 5 MG, UNK
     Route: 048
     Dates: start: 20060526
  5. AMARYL [Concomitant]
     Dosage: 1 MG, UNK
     Route: 048
  6. MELBIN [Concomitant]
     Route: 048

REACTIONS (1)
  - BLOOD CREATINE PHOSPHOKINASE INCREASED [None]
